FAERS Safety Report 8456072-0 (Version None)
Quarter: 2012Q2

REPORT INFORMATION
  Report Type: 
  Country: None (occurrence: None)
  Receive Date: 20120621
  Receipt Date: 20120614
  Transmission Date: 20120825
  Serious: Yes (Hospitalization)
  Sender: FDA-Public Use
  Company Number: PHHY2012FR051690

PATIENT
  Sex: Female

DRUGS (1)
  1. EXELON [Suspect]
     Indication: DEMENTIA WITH LEWY BODIES
     Dosage: 4.5 MG, DAILY
     Route: 048
     Dates: start: 20120308, end: 20120322

REACTIONS (2)
  - GAIT DISTURBANCE [None]
  - FALL [None]
